FAERS Safety Report 9537506 (Version 1)
Quarter: 2013Q3

REPORT INFORMATION
  Report Type: Spontaneous
  Country: CH (occurrence: CH)
  Receive Date: 20130919
  Receipt Date: 20130919
  Transmission Date: 20140515
  Serious: Yes (Life-Threatening, Hospitalization)
  Sender: FDA-Public Use
  Company Number: CH-BRISTOL-MYERS SQUIBB COMPANY-19412972

PATIENT
  Age: 62 Year
  Sex: Male

DRUGS (11)
  1. ABILIFY [Suspect]
     Route: 048
     Dates: start: 20130404, end: 20130415
  2. LYRICA [Suspect]
     Route: 048
     Dates: end: 20130411
  3. LIORESAL [Suspect]
     Route: 048
     Dates: end: 20130415
  4. TRAMAL [Suspect]
     Route: 048
     Dates: end: 20130415
  5. DAFALGAN [Concomitant]
     Route: 048
  6. PANTOZOL [Concomitant]
     Route: 048
  7. ATORVASTATIN [Concomitant]
     Route: 048
  8. TOREM [Concomitant]
     Route: 048
  9. SINTROM [Concomitant]
     Route: 048
  10. CLEXANE [Concomitant]
     Route: 058
  11. CO-AMOXICILLIN [Concomitant]
     Route: 040

REACTIONS (1)
  - Altered state of consciousness [Recovered/Resolved]
